FAERS Safety Report 7362508-9 (Version None)
Quarter: 2011Q1

REPORT INFORMATION
  Report Type: 
  Country: None (occurrence: None)
  Receive Date: 20110318
  Receipt Date: 20110309
  Transmission Date: 20110831
  Serious: Yes (Hospitalization)
  Sender: FDA-Public Use
  Company Number: ES-GENENTECH-287537

PATIENT
  Sex: Male
  Weight: 68 kg

DRUGS (6)
  1. REVLIMID [Suspect]
     Dosage: 2.5 MG, UNK
     Route: 048
     Dates: start: 20090707
  2. RITUXIMAB [Suspect]
     Dosage: 375 MG, QD
     Route: 042
     Dates: start: 20090707
  3. RITUXIMAB [Suspect]
     Dosage: 500 MG/KG, UNK
     Route: 042
     Dates: start: 20091124
  4. REVLIMID [Suspect]
     Indication: CHRONIC LYMPHOCYTIC LEUKAEMIA
     Dosage: 2.5 MG, QD
     Route: 048
     Dates: start: 20090624
  5. SEPTRIN FORTE [Concomitant]
     Indication: ANTIFUNGAL PROPHYLAXIS
     Dosage: 2 TABLET, 2/WEEK
     Route: 048
     Dates: start: 20080122
  6. RITUXIMAB [Suspect]
     Indication: CHRONIC LYMPHOCYTIC LEUKAEMIA
     Dosage: 375 MG/M2, QD
     Route: 042
     Dates: start: 20090622

REACTIONS (2)
  - FEBRILE NEUTROPENIA [None]
  - RESPIRATORY TRACT INFECTION [None]
